FAERS Safety Report 15433537 (Version 1)
Quarter: 2018Q3

REPORT INFORMATION
  Report Type: Spontaneous
  Country: US (occurrence: US)
  Receive Date: 20180921
  Receipt Date: 20180921
  Transmission Date: 20181010
  Serious: Yes (Other)
  Sender: FDA-Public Use
  Company Number: None

PATIENT
  Age: 38 Year
  Sex: Male
  Weight: 142.88 kg

DRUGS (1)
  1. ADIPEX?P [Suspect]
     Active Substance: PHENTERMINE HYDROCHLORIDE
     Indication: INCREASED APPETITE
     Route: 048
     Dates: start: 20180713, end: 20180810

REACTIONS (2)
  - Intraocular pressure increased [None]
  - Therapy cessation [None]

NARRATIVE: CASE EVENT DATE: 20180814
